FAERS Safety Report 21990840 (Version 4)
Quarter: 2023Q2

REPORT INFORMATION
  Report Type: Spontaneous
  Country: JP (occurrence: JP)
  Receive Date: 20230214
  Receipt Date: 20230524
  Transmission Date: 20230721
  Serious: Yes (Hospitalization, Other)
  Sender: FDA-Public Use
  Company Number: JP-MSD-M2023-05142

PATIENT
  Age: 57 Year
  Sex: Male

DRUGS (3)
  1. KEYTRUDA [Suspect]
     Active Substance: PEMBROLIZUMAB
     Indication: Oesophageal squamous cell carcinoma stage IV
     Dosage: 200 MILLIGRAM, Q3W
     Route: 041
     Dates: start: 20221222
  2. CISPLATIN [Suspect]
     Active Substance: CISPLATIN
     Indication: Oesophageal squamous cell carcinoma stage IV
     Dosage: UNK
     Route: 065
  3. FLUOROURACIL [Suspect]
     Active Substance: FLUOROURACIL
     Indication: Oesophageal squamous cell carcinoma stage IV
     Dosage: UNK
     Route: 065

REACTIONS (6)
  - Tumour necrosis [Unknown]
  - Oesophageal perforation [Recovered/Resolved]
  - Malignant neoplasm progression [Recovering/Resolving]
  - Necrosis [Recovering/Resolving]
  - Acquired tracheo-oesophageal fistula [Recovering/Resolving]
  - Suture rupture [Recovering/Resolving]

NARRATIVE: CASE EVENT DATE: 20230106
